FAERS Safety Report 7550522-X (Version None)
Quarter: 2011Q2

REPORT INFORMATION
  Report Type: 
  Country: None (occurrence: None)
  Receive Date: 20110615
  Receipt Date: 20110603
  Transmission Date: 20111010
  Serious: Yes (Other)
  Sender: FDA-Public Use
  Company Number: RO-ELI_LILLY_AND_COMPANY-RO201103002091

PATIENT
  Age: 28 Year
  Sex: Female

DRUGS (1)
  1. OLANZAPINE [Suspect]
     Indication: SCHIZOAFFECTIVE DISORDER
     Dosage: 300 MG, UNKNOWN
     Route: 030
     Dates: start: 20110301

REACTIONS (3)
  - SOMNOLENCE [None]
  - BRADYPHRENIA [None]
  - CHILLS [None]
